FAERS Safety Report 6180996-0 (Version None)
Quarter: 2009Q2

REPORT INFORMATION
  Report Type: 
  Country: None (occurrence: None)
  Receive Date: 20090430
  Receipt Date: 20090210
  Transmission Date: 20091009
  Serious: Yes (Other)
  Sender: FDA-Public Use
  Company Number: 270842

PATIENT
  Age: 84 Year
  Sex: Female

DRUGS (4)
  1. LUCENTIS [Suspect]
     Indication: MACULAR DEGENERATION
     Dosage: 0.5 MG, INTRAVITREAL
     Dates: start: 20081015
  2. CAPTOPRIL [Concomitant]
  3. ZETIA [Concomitant]
  4. PROPRANOLOL (PROPRANOLOL HYDROCHLORIDE) [Concomitant]

REACTIONS (1)
  - EYE INFLAMMATION [None]
